FAERS Safety Report 6318780-7 (Version None)
Quarter: 2009Q3

REPORT INFORMATION
  Report Type: 
  Country: None (occurrence: None)
  Receive Date: 20090819
  Receipt Date: 20090810
  Transmission Date: 20100115
  Serious: Yes (Disabling, Other)
  Sender: FDA-Public Use
  Company Number: 230501K09BRA

PATIENT
  Age: 48 Year
  Sex: Male

DRUGS (4)
  1. REBIF [Suspect]
     Indication: RELAPSING-REMITTING MULTIPLE SCLEROSIS
     Dosage: 44 MCG, 3 IN 1 WEEKS
     Dates: start: 20040101
  2. DEPAKOTE [Concomitant]
  3. HALDOL (HALOPERIDOL/00027401/) [Concomitant]
  4. LEXOTAN (BROMAZEPAM) [Concomitant]

REACTIONS (6)
  - AGITATION [None]
  - CONVULSION [None]
  - DEPRESSION [None]
  - DISTRACTIBILITY [None]
  - FATIGUE [None]
  - SPEECH DISORDER [None]
